FAERS Safety Report 16751052 (Version 1)
Quarter: 2019Q3

REPORT INFORMATION
  Report Type: Spontaneous
  Country: BE (occurrence: BE)
  Receive Date: 20190828
  Receipt Date: 20190828
  Transmission Date: 20191005
  Serious: Yes (Other)
  Sender: FDA-Public Use
  Company Number: BE-MYLANLABS-2019M1080684

PATIENT
  Sex: Female

DRUGS (2)
  1. MOXIFLOXACIN. [Suspect]
     Active Substance: MOXIFLOXACIN
     Indication: PRODUCT USED FOR UNKNOWN INDICATION
     Dosage: UNK
     Route: 065
  2. BELLOZAL [Interacting]
     Active Substance: BILASTINE
     Indication: PRODUCT USED FOR UNKNOWN INDICATION
     Dosage: 20 MILLIGRAM, TOTAL
     Route: 065

REACTIONS (3)
  - Syncope [Unknown]
  - Drug interaction [Unknown]
  - Neurological examination abnormal [Unknown]
